FAERS Safety Report 6613268-8 (Version None)
Quarter: 2010Q1

REPORT INFORMATION
  Report Type: 
  Country: None (occurrence: None)
  Receive Date: 20100304
  Receipt Date: 20100219
  Transmission Date: 20100710
  Serious: Yes (Hospitalization)
  Sender: FDA-Public Use
  Company Number: US-BRISTOL-MYERS SQUIBB COMPANY-14994792

PATIENT
  Age: 75 Year
  Sex: Male
  Weight: 83 kg

DRUGS (15)
  1. CETUXIMAB [Suspect]
     Indication: BLADDER CANCER
     Dosage: MOST RECENT: 03-FEB-2010
     Route: 042
     Dates: start: 20090928
  2. CISPLATIN [Suspect]
     Indication: BLADDER CANCER
     Dosage: DAY 1 OF 4 WEEK CYCLE MOST RECENT INF: 20-JAN-2010
     Route: 042
     Dates: start: 20090928
  3. GEMCITABINE HCL [Suspect]
     Indication: BLADDER CANCER
     Dosage: ON DAYS 1, 8 AND 15 MOST RECENT INF: 20-JAN-2010
     Route: 042
     Dates: start: 20090928
  4. DEXAMETHASONE [Concomitant]
     Indication: BLADDER CANCER
     Route: 065
     Dates: start: 20090928
  5. EMEND [Concomitant]
     Route: 065
     Dates: start: 20090928
  6. GABAPENTIN [Concomitant]
     Route: 065
  7. GLIPIZIDE [Concomitant]
     Route: 065
  8. LIPITOR [Concomitant]
     Route: 048
  9. LORAZEPAM [Concomitant]
     Dosage: Q 4-6 HRS
     Route: 065
  10. MAGNESIUM OXIDE [Concomitant]
     Route: 065
  11. ONDANSETRON [Concomitant]
     Route: 065
  12. OXYCODONE HCL [Concomitant]
     Indication: PAIN
     Route: 065
  13. OXYCONTIN [Concomitant]
     Indication: PAIN
     Dosage: 20MG 3\1 D FROM 11FEB2010
     Route: 065
  14. ZANTAC [Concomitant]
     Route: 065
  15. ZOLOFT [Concomitant]
     Route: 065

REACTIONS (2)
  - CONFUSIONAL STATE [None]
  - HYPOXIA [None]
